FAERS Safety Report 14529752 (Version 1)
Quarter: 2018Q1

REPORT INFORMATION
  Report Type: Spontaneous
  Country: BR (occurrence: BR)
  Receive Date: 20180214
  Receipt Date: 20180214
  Transmission Date: 20180509
  Serious: Yes (Hospitalization, Other)
  Sender: FDA-Public Use
  Company Number: PHHY2018BR013760

PATIENT
  Age: 4 Year
  Sex: Female
  Weight: 29 kg

DRUGS (3)
  1. TEGRETOL [Suspect]
     Active Substance: CARBAMAZEPINE
     Indication: SEIZURE
     Dosage: 13 ML, BID (13 ML IN MORNING AND 13 ML AT NIGHT)
     Route: 048
     Dates: start: 201706, end: 20180121
  2. URBANIL [Concomitant]
     Active Substance: CLOBAZAM
     Indication: SEIZURE
     Dosage: 1 DF, QD
     Route: 048
     Dates: start: 20180201
  3. TEGRETOL [Suspect]
     Active Substance: CARBAMAZEPINE
     Indication: SEIZURE
     Dosage: 2 DF, Q12H
     Route: 048

REACTIONS (4)
  - Petit mal epilepsy [Recovering/Resolving]
  - Loss of consciousness [Recovering/Resolving]
  - Disturbance in attention [Recovering/Resolving]
  - Seizure [Recovering/Resolving]

NARRATIVE: CASE EVENT DATE: 20170906
